FAERS Safety Report 8412515-X (Version None)
Quarter: 2012Q2

REPORT INFORMATION
  Report Type: 
  Country: None (occurrence: None)
  Receive Date: 20120605
  Receipt Date: 20120521
  Transmission Date: 20120825
  Serious: No
  Sender: FDA-Public Use
  Company Number: US-AMGEN-USASP2012031735

PATIENT
  Age: 58 Year
  Sex: Female

DRUGS (1)
  1. ENBREL [Suspect]
     Indication: PSORIASIS
     Dosage: 50 MG, QWK
     Dates: start: 20111019

REACTIONS (16)
  - WRONG TECHNIQUE IN DRUG USAGE PROCESS [None]
  - INJECTION SITE SWELLING [None]
  - INJECTION SITE DISCOLOURATION [None]
  - INJECTION SITE REACTION [None]
  - BREAST CALCIFICATIONS [None]
  - PAIN IN EXTREMITY [None]
  - INJECTION SITE PAIN [None]
  - INJECTION SITE PRURITUS [None]
  - BLOOD TRIGLYCERIDES INCREASED [None]
  - INJECTION SITE URTICARIA [None]
  - WEIGHT INCREASED [None]
  - BONE DENSITY ABNORMAL [None]
  - DRUG EFFECT DECREASED [None]
  - RESPIRATORY DISORDER [None]
  - BACK PAIN [None]
  - INJECTION SITE ERYTHEMA [None]
